FAERS Safety Report 21753638 (Version 1)
Quarter: 2022Q4

REPORT INFORMATION
  Report Type: Spontaneous
  Country: CN (occurrence: CN)
  Receive Date: 20221220
  Receipt Date: 20221220
  Transmission Date: 20230112
  Serious: Yes (Other)
  Sender: FDA-Public Use
  Company Number: CN-MLMSERVICE-2022120539631901

PATIENT
  Age: 44 Year
  Sex: Male

DRUGS (11)
  1. FLUOROURACIL [Suspect]
     Active Substance: FLUOROURACIL
     Indication: Metastases to liver
     Dosage: EVERY 3 WEEKS
  2. IRINOTECAN [Suspect]
     Active Substance: IRINOTECAN
     Indication: Ductal adenocarcinoma of pancreas
     Dosage: EVERY 3 WEEKS
  3. OXALIPLATIN [Suspect]
     Active Substance: OXALIPLATIN
     Indication: Metastases to liver
     Dosage: EVERY 3 WEEKS
  4. LEUCOVORIN [Suspect]
     Active Substance: LEUCOVORIN
     Indication: Ductal adenocarcinoma of pancreas
     Dosage: EVERY 3 WEEKS
  5. CATEQUENTINIB [Suspect]
     Active Substance: CATEQUENTINIB
     Indication: Metastases to liver
     Dosage: FOR 2 IN EVERY TREATMENT CIRCLE FOR 21 DAYS
     Route: 048
  6. PENPULIMAB [Suspect]
     Active Substance: PENPULIMAB
     Indication: Ductal adenocarcinoma of pancreas
  7. OXALIPLATIN [Suspect]
     Active Substance: OXALIPLATIN
     Indication: Ductal adenocarcinoma of pancreas
     Dosage: EVERY 3 WEEKS
  8. FLUOROURACIL [Suspect]
     Active Substance: FLUOROURACIL
     Indication: Ductal adenocarcinoma of pancreas
     Dosage: EVERY 3 WEEKS
  9. LEUCOVORIN [Suspect]
     Active Substance: LEUCOVORIN
     Indication: Metastases to liver
     Dosage: EVERY 3 WEEKS
  10. IRINOTECAN [Suspect]
     Active Substance: IRINOTECAN
     Indication: Metastases to liver
     Dosage: EVERY 3 WEEKS
  11. CATEQUENTINIB [Suspect]
     Active Substance: CATEQUENTINIB
     Indication: Ductal adenocarcinoma of pancreas
     Dosage: FOR 2 IN EVERY TREATMENT CIRCLE FOR 21 DAYS
     Route: 048

REACTIONS (3)
  - Anaemia [Recovered/Resolved]
  - Leukopenia [Recovered/Resolved]
  - Myelosuppression [Recovered/Resolved]
